FAERS Safety Report 7491196-6 (Version None)
Quarter: 2011Q2

REPORT INFORMATION
  Report Type: 
  Country: None (occurrence: None)
  Receive Date: 20110518
  Receipt Date: 20110505
  Transmission Date: 20111010
  Serious: Yes (Other)
  Sender: FDA-Public Use
  Company Number: JPI-P-014935

PATIENT
  Age: 58 Year
  Sex: Female

DRUGS (6)
  1. XYREM [Suspect]
     Indication: SLEEP APNOEA SYNDROME
     Dosage: 6 GM (3 GM, 2 IN 1 D), ORAL 3.5 GM (1.75 GM, 2 IN 1 D), ORAL
     Route: 048
     Dates: start: 20110301
  2. XYREM [Suspect]
     Indication: NARCOLEPSY
     Dosage: 6 GM (3 GM, 2 IN 1 D), ORAL 3.5 GM (1.75 GM, 2 IN 1 D), ORAL
     Route: 048
     Dates: start: 20110301
  3. XYREM [Suspect]
     Indication: FIBROMYALGIA
     Dosage: 6 GM (3 GM, 2 IN 1 D), ORAL 3.5 GM (1.75 GM, 2 IN 1 D), ORAL
     Route: 048
     Dates: start: 20110301
  4. XYREM [Suspect]
     Indication: SLEEP APNOEA SYNDROME
     Dosage: 6 GM (3 GM, 2 IN 1 D), ORAL 3.5 GM (1.75 GM, 2 IN 1 D), ORAL
     Route: 048
     Dates: start: 20101111
  5. XYREM [Suspect]
     Indication: NARCOLEPSY
     Dosage: 6 GM (3 GM, 2 IN 1 D), ORAL 3.5 GM (1.75 GM, 2 IN 1 D), ORAL
     Route: 048
     Dates: start: 20101111
  6. XYREM [Suspect]
     Indication: FIBROMYALGIA
     Dosage: 6 GM (3 GM, 2 IN 1 D), ORAL 3.5 GM (1.75 GM, 2 IN 1 D), ORAL
     Route: 048
     Dates: start: 20101111

REACTIONS (2)
  - TRANSIENT ISCHAEMIC ATTACK [None]
  - BLOOD PRESSURE INADEQUATELY CONTROLLED [None]
